FAERS Safety Report 17392748 (Version 1)
Quarter: 2020Q1

REPORT INFORMATION
  Report Type: Spontaneous
  Country: US (occurrence: US)
  Receive Date: 20200207
  Receipt Date: 20200207
  Transmission Date: 20200409
  Serious: No
  Sender: FDA-Public Use
  Company Number: US-MYLANLABS-2020M1010586

PATIENT
  Sex: Female
  Weight: 43 kg

DRUGS (1)
  1. SCOPOLAMINE TRANSDERMAL SYSTEM [Suspect]
     Active Substance: SCOPOLAMINE
     Indication: PROCEDURAL NAUSEA
     Dosage: 1 DOSAGE FORM, Q3D
     Route: 062

REACTIONS (3)
  - Weight decreased [Not Recovered/Not Resolved]
  - Product adhesion issue [Unknown]
  - Drug ineffective for unapproved indication [Not Recovered/Not Resolved]
